FAERS Safety Report 19442623 (Version 1)
Quarter: 2021Q2

REPORT INFORMATION
  Report Type: Spontaneous
  Country: US (occurrence: US)
  Receive Date: 20210621
  Receipt Date: 20210621
  Transmission Date: 20210717
  Serious: No
  Sender: FDA-Public Use
  Company Number: US-PFIZER INC-2019336828

PATIENT
  Age: 18 Year
  Sex: Female
  Weight: 72 kg

DRUGS (2)
  1. LYRICA [Suspect]
     Active Substance: PREGABALIN
     Indication: OCCIPITAL NEURALGIA
     Dosage: 75 MG, FOUR TIMES A DAY (75 MG TWICE IN THE AM AND TWICE IN THE EVENING)
     Route: 048
     Dates: start: 2019
  2. LYRICA [Suspect]
     Active Substance: PREGABALIN
     Indication: NECK PAIN
     Dosage: 150 MG, TWICE A DAY, (75MG, TAKE 2 CAPSULES TWICE A DAY/TWO IN THE MORNING AND TWO IN THE EVENING)
     Route: 048

REACTIONS (1)
  - Withdrawal syndrome [Unknown]
